FAERS Safety Report 5579769-9 (Version None)
Quarter: 2008Q1

REPORT INFORMATION
  Report Type: 
  Country: None (occurrence: None)
  Receive Date: 20080102
  Receipt Date: 20071221
  Transmission Date: 20080703
  Serious: Yes (Other)
  Sender: FDA-Public Use
  Company Number: JP-PFIZER INC-2007083489

PATIENT
  Age: 40 Year
  Sex: Male

DRUGS (3)
  1. CARDENALIN [Suspect]
     Indication: ESSENTIAL HYPERTENSION
     Route: 048
     Dates: start: 20070214, end: 20070926
  2. CALBLOCK [Concomitant]
     Indication: HYPERTENSION
     Route: 048
  3. OLMETEC [Concomitant]
     Indication: HYPERTENSION
     Route: 048

REACTIONS (1)
  - ERECTILE DYSFUNCTION [None]
